FAERS Safety Report 15350107 (Version 1)
Quarter: 2018Q3

REPORT INFORMATION
  Report Type: Spontaneous
  Country: JP (occurrence: JP)
  Receive Date: 20180905
  Receipt Date: 20180905
  Transmission Date: 20181010
  Serious: Yes (Death, Hospitalization, Other)
  Sender: FDA-Public Use
  Company Number: JP-SUN PHARMACEUTICAL INDUSTRIES LTD-2018RR-183313

PATIENT
  Age: 44 Year
  Sex: Female

DRUGS (9)
  1. MEROPENEM. [Suspect]
     Active Substance: MEROPENEM
     Indication: INFECTION
     Dosage: 1 G, TID, EVERY 8 HOURS
     Route: 065
  2. PARACETAMOL [Concomitant]
     Active Substance: ACETAMINOPHEN
     Indication: GENITAL INFECTION
     Dosage: 1500 MG, DAILY
     Route: 065
  3. DICLOFENAC [Concomitant]
     Active Substance: DICLOFENAC
     Indication: PRODUCT USED FOR UNKNOWN INDICATION
     Dosage: 75 MG, DAILY
     Route: 065
  4. CLINDAMYCIN. [Suspect]
     Active Substance: CLINDAMYCIN
     Indication: INFECTION
     Dosage: 600 MG, TID, EVERY 8 HOURS
     Route: 065
  5. GENTAMICIN. [Suspect]
     Active Substance: GENTAMICIN
     Indication: GENITAL INFECTION
     Dosage: UNK
     Route: 065
  6. LIDOCAIN [Suspect]
     Active Substance: LIDOCAINE
     Indication: INFECTION
     Dosage: UNK
     Route: 065
  7. DESMOPRESSIN [Suspect]
     Active Substance: DESMOPRESSIN
     Indication: DIABETES MELLITUS
     Route: 065
  8. CEFTRIAXONE. [Suspect]
     Active Substance: CEFTRIAXONE
     Indication: INFECTION
     Dosage: 1 G, TID, EVERY 8 HOURS
     Route: 042
  9. VANCOMYCIN [Suspect]
     Active Substance: VANCOMYCIN
     Indication: INFECTION
     Dosage: 1 G, BID, EVERY 12 HOURS
     Route: 065

REACTIONS (5)
  - Disease progression [Unknown]
  - Drug effect incomplete [Unknown]
  - Drug ineffective [Unknown]
  - Disseminated intravascular coagulation [Fatal]
  - Pancytopenia [Fatal]
